FAERS Safety Report 15061341 (Version 6)
Quarter: 2022Q1

REPORT INFORMATION
  Report Type: Report from Study
  Country: CO (occurrence: CO)
  Receive Date: 20180625
  Receipt Date: 20220330
  Transmission Date: 20220423
  Serious: Yes (Other)
  Sender: FDA-Public Use
  Company Number: PHHY2018CO002924

PATIENT
  Age: 49 Year
  Sex: Female
  Weight: 84 kg

DRUGS (11)
  1. XOLAIR [Suspect]
     Active Substance: OMALIZUMAB
     Indication: Asthma
     Dosage: 300 MG, EVERY 15 DAYS
     Route: 058
     Dates: end: 20180409
  2. XOLAIR [Suspect]
     Active Substance: OMALIZUMAB
     Dosage: 600 MG, EVERY 15 DAYS (IN OCTOBER)
     Route: 058
  3. XOLAIR [Suspect]
     Active Substance: OMALIZUMAB
     Dosage: 300 MG FORTNIGHTLY (CONFIRMED THAT SINCE THE TREATMENT STARTED APPLICATIONS HAD BEEN FORTNIGHTLY), A
     Route: 058
  4. XOLAIR [Suspect]
     Active Substance: OMALIZUMAB
     Dosage: 300 MG FORTNIGHTLY (CONFIRMED THAT SINCE THE TREATMENT STARTED APPLICATIONS HAD BEEN FORTNIGHTLY)
     Route: 058
     Dates: start: 20211030
  5. XOLAIR [Suspect]
     Active Substance: OMALIZUMAB
     Dosage: 300 MG FORTNIGHTLY (CONFIRMED THAT SINCE THE TREATMENT STARTED APPLICATIONS HAD BEEN FORTNIGHTLY)
     Route: 058
     Dates: start: 20211211
  6. XOLAIR [Suspect]
     Active Substance: OMALIZUMAB
     Dosage: 300 MG, QMO
     Route: 058
  7. XOLAIR [Suspect]
     Active Substance: OMALIZUMAB
     Dosage: 600 MG, BIW
     Route: 058
  8. XOLAIR [Suspect]
     Active Substance: OMALIZUMAB
     Dosage: 600 MG, QMO
     Route: 058
  9. MONTELUKAST SODIUM [Suspect]
     Active Substance: MONTELUKAST SODIUM
     Indication: Product used for unknown indication
     Dosage: UNK
     Route: 065
  10. PREGABALIN [Suspect]
     Active Substance: PREGABALIN
     Indication: Anxiety
     Dosage: 75 MG, Q8H (SINCE A YEAR AGO)
     Route: 048
  11. LORATADINE [Concomitant]
     Active Substance: LORATADINE
     Indication: Product used for unknown indication
     Dosage: UNK
     Route: 065

REACTIONS (18)
  - Nephrolithiasis [Unknown]
  - Drug intolerance [Unknown]
  - Malaise [Unknown]
  - Dyspnoea [Not Recovered/Not Resolved]
  - Sleep disorder [Not Recovered/Not Resolved]
  - Chest discomfort [Recovered/Resolved]
  - Pain [Recovered/Resolved]
  - Influenza [Recovered/Resolved]
  - Anxiety [Recovered/Resolved]
  - Fatigue [Not Recovered/Not Resolved]
  - Chest pain [Unknown]
  - Fear [Unknown]
  - Oxygen saturation abnormal [Unknown]
  - Feeling abnormal [Unknown]
  - Headache [Unknown]
  - Pyrexia [Unknown]
  - Product dose omission issue [Unknown]
  - Drug ineffective [Unknown]

NARRATIVE: CASE EVENT DATE: 20180502
